FAERS Safety Report 5802192-6 (Version None)
Quarter: 2008Q3

REPORT INFORMATION
  Report Type: 
  Country: None (occurrence: None)
  Receive Date: 20080702
  Receipt Date: 20080617
  Transmission Date: 20090109
  Serious: Yes (Disabling)
  Sender: FDA-Public Use
  Company Number: 2008S1010544

PATIENT
  Age: 65 Year
  Sex: Female

DRUGS (6)
  1. FUROSEMIDE [Suspect]
     Indication: OEDEMA PERIPHERAL
     Dosage: 20 MG;DAILY;ORAL
     Route: 048
     Dates: start: 20080522, end: 20080604
  2. ADALAT [Concomitant]
  3. EPILIM [Concomitant]
  4. LEVOTHYROXINE SODIUM [Concomitant]
  5. QUININE SULPHATE [Concomitant]
  6. TRAMADOL HCL [Concomitant]

REACTIONS (3)
  - FALL [None]
  - VERTIGO [None]
  - VOMITING [None]
